FAERS Safety Report 23101756 (Version 1)
Quarter: 2023Q4

REPORT INFORMATION
  Report Type: Other
  Country: US (occurrence: US)
  Receive Date: 20231025
  Receipt Date: 20231025
  Transmission Date: 20240109
  Serious: Yes (Other)
  Sender: FDA-Public Use
  Company Number: US-C B Fleet Co Inc-202310-US-003170

PATIENT
  Age: 20 Year
  Sex: Female

DRUGS (1)
  1. DIPHENHYDRAMINE HYDROCHLORIDE [Suspect]
     Active Substance: DIPHENHYDRAMINE HYDROCHLORIDE
     Indication: Overdose
     Dosage: UNKNOWN AMOUNT

REACTIONS (4)
  - Seizure like phenomena [Recovered/Resolved]
  - Metabolic acidosis [Unknown]
  - Joint dislocation [Recovered/Resolved]
  - Overdose [None]
